FAERS Safety Report 23902814 (Version 1)
Quarter: 2024Q2

REPORT INFORMATION
  Report Type: Spontaneous
  Country: US (occurrence: US)
  Receive Date: 20240527
  Receipt Date: 20240527
  Transmission Date: 20240716
  Serious: Yes (Hospitalization)
  Sender: FDA-Public Use
  Company Number: US-STRIDES ARCOLAB LIMITED-2024SP006062

PATIENT

DRUGS (2)
  1. PREDNISOLONE [Suspect]
     Active Substance: PREDNISOLONE
     Indication: Glomerulonephritis minimal lesion
     Dosage: 1 MILLIGRAM/KILOGRAM, QD (HEALTHCARE PROVIDER INSTRUCTIONS: THIS DOSE ADMINISTERED FOR 16 WEEKS FOLL
     Route: 065
  2. RITUXIMAB [Concomitant]
     Active Substance: RITUXIMAB
     Indication: Glomerulonephritis minimal lesion
     Dosage: UNK, INFUSION
     Route: 065

REACTIONS (2)
  - Product communication issue [Unknown]
  - Steroid diabetes [Recovered/Resolved]
